FAERS Safety Report 7360613-4 (Version None)
Quarter: 2011Q1

REPORT INFORMATION
  Report Type: 
  Country: None (occurrence: None)
  Receive Date: 20110318
  Receipt Date: 20110309
  Transmission Date: 20110831
  Serious: Yes (Life-Threatening, Hospitalization)
  Sender: FDA-Public Use
  Company Number: FR-BAXTER-2011BH006197

PATIENT
  Age: 48 Year
  Sex: Male

DRUGS (7)
  1. MABTHERA [Suspect]
     Indication: NON-HODGKIN'S LYMPHOMA
     Route: 042
     Dates: start: 20100525, end: 20100930
  2. DOXORUBICIN HCL [Suspect]
     Indication: NON-HODGKIN'S LYMPHOMA
     Route: 042
     Dates: start: 20100529, end: 20101001
  3. CYCLOPHOSPHAMIDE [Suspect]
     Indication: NON-HODGKIN'S LYMPHOMA
     Route: 042
     Dates: start: 20100529, end: 20101001
  4. DEPO-MEDROL [Concomitant]
     Indication: NON-HODGKIN'S LYMPHOMA
     Route: 037
     Dates: start: 20100621, end: 20100729
  5. VINCRISTINE SULFATE [Suspect]
     Indication: NON-HODGKIN'S LYMPHOMA
     Route: 042
     Dates: start: 20100529, end: 20101001
  6. CORTANCYL [Suspect]
     Indication: NON-HODGKIN'S LYMPHOMA
     Route: 048
     Dates: start: 20100529, end: 20101004
  7. METHOTREXATE [Concomitant]
     Indication: NON-HODGKIN'S LYMPHOMA
     Route: 037
     Dates: start: 20100621, end: 20100729

REACTIONS (1)
  - PNEUMOCYSTIS JIROVECI PNEUMONIA [None]
